FAERS Safety Report 16361783 (Version 1)
Quarter: 2019Q2

REPORT INFORMATION
  Report Type: Spontaneous
  Country: JP (occurrence: JP)
  Receive Date: 20190528
  Receipt Date: 20190528
  Transmission Date: 20190711
  Serious: Yes (Other)
  Sender: FDA-Public Use
  Company Number: JP-LEADING PHARMA, LLC-2067483

PATIENT
  Age: 37 Year
  Sex: Female
  Weight: 42.5 kg

DRUGS (1)
  1. NIFEDIPINE. [Suspect]
     Active Substance: NIFEDIPINE
     Indication: HYPERTENSION

REACTIONS (2)
  - Neuromuscular block prolonged [Recovered/Resolved]
  - Drug ineffective [Recovered/Resolved]
